FAERS Safety Report 16842249 (Version 1)
Quarter: 2019Q3

REPORT INFORMATION
  Report Type: Spontaneous
  Country: MX (occurrence: MX)
  Receive Date: 20190924
  Receipt Date: 20190924
  Transmission Date: 20191005
  Serious: Yes (Life-Threatening, Hospitalization, Other)
  Sender: FDA-Public Use
  Company Number: MX-ACCORD-155271

PATIENT
  Age: 19 Month
  Sex: Male

DRUGS (11)
  1. ALLOPURINOL. [Concomitant]
     Active Substance: ALLOPURINOL
     Indication: TUMOUR LYSIS SYNDROME
  2. ETOPOSIDE. [Suspect]
     Active Substance: ETOPOSIDE
     Indication: NATURAL KILLER-CELL LEUKAEMIA
     Dosage: (200 MG/M2/DAY IN 3 HRS. ON DAYS 2-4 IV)
     Route: 042
  3. MESNA. [Suspect]
     Active Substance: MESNA
     Indication: NATURAL KILLER-CELL LEUKAEMIA
     Dosage: MESNA (500 MG/M2/IV DOSE EVERY 6 HRS)
     Route: 042
  4. ETOPOSIDE. [Suspect]
     Active Substance: ETOPOSIDE
     Indication: NATURAL KILLER-CELL LEUKAEMIA
     Dosage: (100 MG/M2/DAY IV IN 3 HRS ON DAYS 2-4)
     Route: 042
  5. METHOTREXATE. [Suspect]
     Active Substance: METHOTREXATE
     Indication: NATURAL KILLER-CELL LEUKAEMIA
     Dosage: HIGH DOSES OF MTX (5,000 MG/M2/DAY, 24 HRS INFUSION IV ON DAY ONE)
     Route: 042
  6. DEXAMETHASONE. [Suspect]
     Active Substance: DEXAMETHASONE
     Indication: NATURAL KILLER-CELL LEUKAEMIA
     Dosage: DEXAMETHASONE (40 MG/M2/DOSE EVERY 8 HRS. FOR 12 IV DOSES, STARTING ON DAY ONE
     Route: 042
  7. GLUCOSE/SODIUM BICARBONATE [Concomitant]
     Indication: TUMOUR LYSIS SYNDROME
     Dosage: HYPERHYDRATION SOLUTIONS
  8. IFOSFAMIDE. [Suspect]
     Active Substance: IFOSFAMIDE
     Indication: NATURAL KILLER-CELL LEUKAEMIA
     Dosage: IFOSFAMIDE (2,000 MG/M2/DAY IN 1 HR ON DAYS 2-4
  9. ASPARAGINASE [Suspect]
     Active Substance: ASPARAGINASE
     Indication: NATURAL KILLER-CELL LEUKAEMIA
     Dosage: L-ASPARAGINASE (6,000 IU/M2 ON DAYS 8, 10, 12, 14, 16, 18 AND 20)
  10. IFOSFAMIDE. [Suspect]
     Active Substance: IFOSFAMIDE
     Indication: NATURAL KILLER-CELL LEUKAEMIA
     Dosage: IFOSFAMIDE (1,500 MG/M2/DAY IN 1 HR ON DAYS 2-4)
  11. FOLINIC ACID [Suspect]
     Active Substance: LEUCOVORIN
     Indication: NATURAL KILLER-CELL LEUKAEMIA
     Dosage: FOLINIC ACID (15 MG/M2/DOSE, STARTING AT HOUR 36 OF MTX FOR 5 IV DOSES)
     Route: 042

REACTIONS (2)
  - Pancytopenia [Unknown]
  - Septic shock [Unknown]
